FAERS Safety Report 10351526 (Version 1)
Quarter: 2014Q3

REPORT INFORMATION
  Report Type: Spontaneous
  Country: TW (occurrence: TW)
  Receive Date: 20140730
  Receipt Date: 20140730
  Transmission Date: 20150326
  Serious: Yes (Other)
  Sender: FDA-Public Use
  Company Number: TW-ROXANE LABORATORIES, INC.-2014-RO-01127RO

PATIENT
  Age: 29 Year
  Sex: Male

DRUGS (4)
  1. FLUNITRAZEPAM [Concomitant]
     Active Substance: FLUNITRAZEPAM
     Indication: INSOMNIA
     Route: 065
  2. ZOLPIDEM [Suspect]
     Active Substance: ZOLPIDEM\ZOLPIDEM TARTRATE
     Indication: INSOMNIA
     Dosage: 40 MG
     Route: 065
  3. ZOLPIDEM [Suspect]
     Active Substance: ZOLPIDEM\ZOLPIDEM TARTRATE
     Route: 050
  4. DULOXETINE [Suspect]
     Active Substance: DULOXETINE
     Indication: DEPRESSION
     Dosage: 60 MG
     Route: 065

REACTIONS (8)
  - Performance status decreased [Unknown]
  - Confusional state [Unknown]
  - Communication disorder [Unknown]
  - Thrombophlebitis [Recovered/Resolved]
  - Abnormal behaviour [Unknown]
  - Affect lability [Unknown]
  - Drug abuser [Recovered/Resolved]
  - Impaired driving ability [Unknown]
